FAERS Safety Report 6220840-6 (Version None)
Quarter: 2009Q2

REPORT INFORMATION
  Report Type: 
  Country: None (occurrence: None)
  Receive Date: 20090610
  Receipt Date: 20090529
  Transmission Date: 20091009
  Serious: Yes (Death, Life-Threatening, Hospitalization)
  Sender: FDA-Public Use
  Company Number: BE-PFIZER INC-2009202090

PATIENT
  Age: 31 Year

DRUGS (17)
  1. BLINDED *PLACEBO [Suspect]
     Indication: SYSTEMIC CANDIDA
     Dosage: UNK
     Route: 042
     Dates: start: 20090317, end: 20090330
  2. BLINDED ANIDULAFUNGIN [Suspect]
     Indication: SYSTEMIC CANDIDA
     Dosage: UNK
     Route: 042
     Dates: start: 20090317, end: 20090330
  3. VORICONAZOLE [Suspect]
     Indication: BRONCHOPULMONARY ASPERGILLOSIS
     Dosage: UNK
     Route: 042
     Dates: start: 20090317, end: 20090324
  4. VORICONAZOLE [Suspect]
     Dosage: 300 MG, 2X/DAY
     Route: 048
     Dates: start: 20090325, end: 20090419
  5. MEDROL [Concomitant]
     Indication: IMMUNOSUPPRESSION
     Dosage: 2 MG, UNK
  6. INDERAL [Concomitant]
     Indication: HYPERTENSION
     Dosage: 40 MG, 1X/DAY
  7. AMLOR [Concomitant]
     Dosage: 10 MG, 1X/DAY
  8. FOLAVIT [Concomitant]
     Dosage: 4 MG, UNK
  9. NEORAL [Concomitant]
     Indication: IMMUNOSUPPRESSION
     Dosage: 100 MG, 1X/DAY
  10. NEORAL [Concomitant]
     Dosage: 75 MG, 1X/DAY
  11. ZANTAC [Concomitant]
     Dosage: 300 MG, 1X/DAY
  12. DOCACICLO [Concomitant]
     Dosage: 800 MG, 3X/DAY
  13. ZYVOXID [Concomitant]
  14. ACTRAPID [Concomitant]
     Dosage: UNK
  15. INSULATARD [Concomitant]
     Dosage: UNK
  16. ALL OTHER THERAPEUTIC PRODUCTS [Concomitant]
  17. TRAMADOL HCL [Concomitant]

REACTIONS (2)
  - DISEASE PROGRESSION [None]
  - PYREXIA [None]
